FAERS Safety Report 4315708-6 (Version None)
Quarter: 2004Q1

REPORT INFORMATION
  Report Type: 
  Country: None (occurrence: None)
  Receive Date: 20040309
  Receipt Date: 20040226
  Transmission Date: 20041129
  Serious: Yes (Hospitalization)
  Sender: FDA-Public Use
  Company Number: US-SHR-03-017813

PATIENT
  Age: 45 Year
  Sex: Female

DRUGS (1)
  1. BETASERON [Suspect]
     Indication: MULTIPLE SCLEROSIS
     Dosage: 4 MIU, EVERY 2D, SUBCUTANEOUS
     Route: 058
     Dates: start: 20030918

REACTIONS (6)
  - FALL [None]
  - FEELING ABNORMAL [None]
  - HIP FRACTURE [None]
  - INFLUENZA LIKE ILLNESS [None]
  - MALAISE [None]
  - TRAUMATIC FRACTURE [None]
